FAERS Safety Report 11054916 (Version 1)
Quarter: 2015Q2

REPORT INFORMATION
  Report Type: Spontaneous
  Country: US (occurrence: None)
  Receive Date: 20150421
  Receipt Date: 20150421
  Transmission Date: 20150821
  Serious: Yes (Disabling)
  Sender: FDA-Public Use
  Company Number: None

PATIENT
  Age: 79 Year
  Sex: Female
  Weight: 95.26 kg

DRUGS (5)
  1. CALSARTAN-HCTZ [Concomitant]
  2. XANAX [Concomitant]
     Active Substance: ALPRAZOLAM
  3. BENICAR [Suspect]
     Active Substance: OLMESARTAN MEDOXOMIL
     Indication: BLOOD PRESSURE
     Dosage: 40
     Route: 048
     Dates: start: 20050101, end: 20150101
  4. SYNTHROID [Concomitant]
     Active Substance: LEVOTHYROXINE SODIUM
  5. AMLODIPINE [Concomitant]
     Active Substance: AMLODIPINE BESYLATE

REACTIONS (5)
  - Abnormal faeces [None]
  - Impaired work ability [None]
  - Diarrhoea [None]
  - Social problem [None]
  - Irritable bowel syndrome [None]

NARRATIVE: CASE EVENT DATE: 20150401
